FAERS Safety Report 9913151 (Version 1)
Quarter: 2014Q1

REPORT INFORMATION
  Report Type: Spontaneous
  Country: US (occurrence: None)
  Receive Date: 20140218
  Receipt Date: 20140218
  Transmission Date: 20141002
  Serious: Yes (Hospitalization)
  Sender: FDA-Public Use
  Company Number: None

PATIENT
  Age: 28 Year
  Sex: Male
  Weight: 148 kg

DRUGS (5)
  1. AMIODARONE [Suspect]
     Indication: ATRIAL FLUTTER
     Dosage: X1 THAN INFUSIONX24H
     Dates: start: 20140209, end: 20140210
  2. ADENOSINE [Concomitant]
  3. LIDOCAINE [Suspect]
  4. CARVEDILOL [Concomitant]
  5. LISINOPRIL [Concomitant]

REACTIONS (1)
  - Liver function test abnormal [None]
